FAERS Safety Report 4422662-5 (Version None)
Quarter: 2004Q3

REPORT INFORMATION
  Report Type: 
  Country: None (occurrence: None)
  Receive Date: 20040810
  Receipt Date: 20040804
  Transmission Date: 20050211
  Serious: Yes (Disabling)
  Sender: FDA-Public Use
  Company Number: GB-MERCK-0408GBR00039

PATIENT
  Sex: Female

DRUGS (5)
  1. ATENOLOL [Concomitant]
     Route: 048
  2. ATORVASTATIN CALCIUM [Concomitant]
     Route: 048
  3. CARBIDOPA AND LEVODOPA [Concomitant]
     Route: 048
  4. PERGOLIDE [Concomitant]
     Route: 048
  5. VIOXX [Suspect]
     Route: 048
     Dates: end: 20040415

REACTIONS (1)
  - DYSKINESIA [None]
